FAERS Safety Report 6431395-5 (Version None)
Quarter: 2009Q4

REPORT INFORMATION
  Report Type: 
  Country: None (occurrence: None)
  Receive Date: 20091106
  Receipt Date: 20091027
  Transmission Date: 20100525
  Serious: Yes (Other)
  Sender: FDA-Public Use
  Company Number: PHHY2009BR26839

PATIENT
  Age: 86 Year
  Sex: Male

DRUGS (2)
  1. RASILEZ [Suspect]
     Dosage: 300 MG, UNK
  2. RASILEZ [Suspect]
     Dosage: 150 MG, UNK

REACTIONS (5)
  - BLOOD CREATININE INCREASED [None]
  - BLOOD UREA INCREASED [None]
  - PROTEINURIA [None]
  - RENAL ARTERY STENOSIS [None]
  - RENAL IMPAIRMENT [None]
